FAERS Safety Report 6915992-6 (Version None)
Quarter: 2010Q3

REPORT INFORMATION
  Report Type: 
  Country: None (occurrence: None)
  Receive Date: 20100809
  Receipt Date: 20100809
  Transmission Date: 20110219
  Serious: Yes (Hospitalization)
  Sender: FDA-Public Use
  Company Number: None

PATIENT
  Sex: Female
  Weight: 81.6475 kg

DRUGS (2)
  1. FOSAMAX [Suspect]
     Indication: OSTEOPENIA
     Dosage: ONE TABLET MONTHLY PO
     Route: 048
     Dates: start: 20010101, end: 20070701
  2. ACTONEL [Suspect]
     Indication: OSTEOPENIA
     Dosage: ONE TABLET MONTHLY O
     Route: 048
     Dates: start: 20070801, end: 20100701

REACTIONS (3)
  - FALL [None]
  - FEMUR FRACTURE [None]
  - IMPAIRED WORK ABILITY [None]
